FAERS Safety Report 7941237-4 (Version None)
Quarter: 2011Q4

REPORT INFORMATION
  Report Type: 
  Country: None (occurrence: None)
  Receive Date: 20111128
  Receipt Date: 20111116
  Transmission Date: 20120403
  Serious: Yes (Hospitalization, Other)
  Sender: FDA-Public Use
  Company Number: US-BAYER-2011-110560

PATIENT
  Sex: Male

DRUGS (8)
  1. SORAFENIB (RAF KINASE INHIBITOR) [Suspect]
     Indication: PROSTATE CANCER METASTATIC
     Dosage: 200 MG, ON 5 DAYS/WEEK
     Route: 048
     Dates: start: 20080501, end: 20081201
  2. BEVACIZUMAB [Suspect]
     Indication: PROSTATE CANCER METASTATIC
     Dosage: 5 MG/KG, Q2WK
     Route: 065
     Dates: start: 20080501, end: 20081201
  3. PACLITAXEL [Suspect]
     Indication: PROSTATE CANCER METASTATIC
     Dosage: 80 MG/M2, TIW, EVERY 4 WEEKS
     Route: 065
     Dates: start: 20080501, end: 20081201
  4. SORAFENIB (RAF KINASE INHIBITOR) [Suspect]
     Dosage: 200 MG, QD, ON 5 DAYS/WEEK
     Route: 048
     Dates: start: 20081201, end: 20100702
  5. ZOLEDRONIC ACID [Suspect]
     Indication: PROSTATE CANCER RECURRENT
     Dosage: 4 MG, OM
     Route: 042
     Dates: start: 20051101, end: 20090101
  6. BEVACIZUMAB [Suspect]
     Dosage: 5 MG/KG, Q2WK
     Route: 065
     Dates: start: 20090101, end: 20100629
  7. ZOLEDRONIC ACID [Suspect]
     Indication: METASTASES TO BONE
     Dosage: 4 MG, OM
     Route: 042
     Dates: start: 20040201, end: 20041201
  8. PACLITAXEL [Suspect]
     Dosage: 80 MG/M2, TIW, EVERY 4 WEEKS
     Route: 065
     Dates: start: 20081201, end: 20100629

REACTIONS (3)
  - OSTEONECROSIS OF JAW [None]
  - JAW FRACTURE [None]
  - BONE EROSION [None]
